FAERS Safety Report 6388098-5 (Version None)
Quarter: 2009Q4

REPORT INFORMATION
  Report Type: 
  Country: None (occurrence: None)
  Receive Date: 20091005
  Receipt Date: 20091001
  Transmission Date: 20100525
  Serious: Yes (Hospitalization)
  Sender: FDA-Public Use
  Company Number: US-B.I. PHARMACEUTICALS,INC./RIDGEFIELD-2009-BP-11464BP

PATIENT
  Age: 66 Year
  Sex: Male

DRUGS (1)
  1. AGGRENOX [Suspect]
     Indication: PROPHYLAXIS
     Dosage: 50MG/400MG
     Route: 048
     Dates: start: 20090901, end: 20091001

REACTIONS (1)
  - THROMBOTIC THROMBOCYTOPENIC PURPURA [None]
